FAERS Safety Report 25386845 (Version 1)
Quarter: 2025Q2

REPORT INFORMATION
  Report Type: Spontaneous
  Country: FR (occurrence: FR)
  Receive Date: 20250602
  Receipt Date: 20250602
  Transmission Date: 20250716
  Serious: Yes (Other)
  Sender: MYLAN
  Company Number: None

PATIENT
  Age: 68 Year
  Sex: Male

DRUGS (4)
  1. TRAMADOL [Suspect]
     Active Substance: TRAMADOL
     Indication: Product used for unknown indication
     Dosage: 75 MILLIGRAM, BID, 75 MG/DAY (1 TABLET MORNING AND EVENING)
     Dates: start: 202209
  2. TRAMADOL [Suspect]
     Active Substance: TRAMADOL
     Dosage: 75 MILLIGRAM, BID, 75 MG/DAY (1 TABLET MORNING AND EVENING)
     Route: 048
     Dates: start: 202209
  3. TRAMADOL [Suspect]
     Active Substance: TRAMADOL
     Dosage: 75 MILLIGRAM, BID, 75 MG/DAY (1 TABLET MORNING AND EVENING)
     Route: 048
     Dates: start: 202209
  4. TRAMADOL [Suspect]
     Active Substance: TRAMADOL
     Dosage: 75 MILLIGRAM, BID, 75 MG/DAY (1 TABLET MORNING AND EVENING)
     Dates: start: 202209

REACTIONS (1)
  - Drug use disorder [Not Recovered/Not Resolved]
